FAERS Safety Report 5386107-3 (Version None)
Quarter: 2007Q3

REPORT INFORMATION
  Report Type: 
  Country: None (occurrence: None)
  Receive Date: 20070710
  Receipt Date: 20070626
  Transmission Date: 20080115
  Serious: Yes (Hospitalization)
  Sender: FDA-Public Use
  Company Number: 02100-JPN-07-0316

PATIENT
  Age: 81 Year
  Sex: Female

DRUGS (6)
  1. CLOPIDOGREL [Suspect]
     Indication: CEREBRAL INFARCTION
     Dosage: ONE OF 200 MG OR 75 MG, ORAL
     Route: 048
     Dates: start: 20051130, end: 20060623
  2. ATENOLOL [Concomitant]
  3. CILOSTAZOL [Suspect]
  4. ASPIRIN [Concomitant]
  5. CANDESARTAN CILEXETIL/HYDROCHLOROTHIAZIDE [Concomitant]
  6. AMITRIPTYLINE HCL [Concomitant]

REACTIONS (2)
  - FALL [None]
  - HIP FRACTURE [None]
